FAERS Safety Report 5394747-0 (Version None)
Quarter: 2007Q3

REPORT INFORMATION
  Report Type: 
  Country: None (occurrence: None)
  Receive Date: 20070723
  Receipt Date: 20070713
  Transmission Date: 20080115
  Serious: Yes (Other)
  Sender: FDA-Public Use
  Company Number: US-MERCK-0611USA06667

PATIENT
  Age: 64 Year
  Sex: Female

DRUGS (3)
  1. FOSAMAX [Suspect]
     Indication: OSTEOPOROSIS
     Route: 048
     Dates: start: 20010101, end: 20060101
  2. FOSAMAX [Suspect]
     Indication: OSTEOPENIA
     Route: 048
     Dates: start: 20010101, end: 20060101
  3. EVISTA [Concomitant]
     Indication: HORMONE LEVEL ABNORMAL
     Route: 065
     Dates: start: 19850101

REACTIONS (17)
  - ANXIETY [None]
  - BONE DISORDER [None]
  - BREAST MASS [None]
  - CORONARY ARTERY DISEASE [None]
  - DEPRESSION [None]
  - FACIAL PAIN [None]
  - HYPERLIPIDAEMIA [None]
  - HYPERTENSION [None]
  - INSOMNIA [None]
  - LUMBAR RADICULOPATHY [None]
  - MYOCARDIAL INFARCTION [None]
  - MYOSITIS [None]
  - ORAL INFECTION [None]
  - OSTEOARTHRITIS [None]
  - PAIN IN JAW [None]
  - TOOTHACHE [None]
  - VASCULAR INSUFFICIENCY [None]
